FAERS Safety Report 25823235 (Version 1)
Quarter: 2025Q3

REPORT INFORMATION
  Report Type: Spontaneous
  Country: US (occurrence: US)
  Receive Date: 20250919
  Receipt Date: 20250919
  Transmission Date: 20251020
  Serious: No
  Sender: VIVUS
  Company Number: US-VIVUS LLC-2025V1000083

PATIENT

DRUGS (1)
  1. QSYMIA [Suspect]
     Active Substance: PHENTERMINE HYDROCHLORIDE\TOPIRAMATE
     Indication: Product used for unknown indication
     Route: 048

REACTIONS (8)
  - Hyperlipidaemia [Unknown]
  - Vitamin D deficiency [Unknown]
  - Rosacea [Unknown]
  - Deep vein thrombosis [Unknown]
  - Goitre [Unknown]
  - Methylenetetrahydrofolate reductase deficiency [Unknown]
  - Depression [Unknown]
  - Anxiety [Unknown]
